FAERS Safety Report 6306276-8 (Version None)
Quarter: 2009Q3

REPORT INFORMATION
  Report Type: 
  Country: None (occurrence: None)
  Receive Date: 20090812
  Receipt Date: 20090803
  Transmission Date: 20100115
  Serious: Yes (Other)
  Sender: FDA-Public Use
  Company Number: PHHY2009BR33201

PATIENT
  Age: 7 Year
  Sex: Female

DRUGS (4)
  1. TEGRETOL [Suspect]
     Indication: OBSESSIVE-COMPULSIVE DISORDER
     Dosage: 10 ML IN THE MORNING AND 5ML AT NIGHT
     Route: 048
     Dates: start: 20070101, end: 20080101
  2. TEGRETOL [Suspect]
     Dosage: 5ML IN THE MORNING
     Route: 048
     Dates: start: 20090729
  3. RITALIN [Suspect]
     Indication: PSYCHOMOTOR HYPERACTIVITY
     Dosage: 10 MG, QD
     Dates: start: 20090301
  4. RITALIN [Suspect]
     Dosage: 10 MG, QD
     Dates: start: 20090729

REACTIONS (5)
  - AGGRESSION [None]
  - DRUG INEFFECTIVE [None]
  - IRRITABILITY [None]
  - SOMNOLENCE [None]
  - WEIGHT INCREASED [None]
